FAERS Safety Report 20790710 (Version 4)
Quarter: 2022Q4

REPORT INFORMATION
  Report Type: Spontaneous
  Country: PL (occurrence: PL)
  Receive Date: 20220505
  Receipt Date: 20221213
  Transmission Date: 20230113
  Serious: No
  Sender: FDA-Public Use
  Company Number: PL-BRISTOL-MYERS SQUIBB COMPANY-2022-030820

PATIENT
  Age: 80 Year
  Sex: Female

DRUGS (2)
  1. ELIQUIS [Suspect]
     Active Substance: APIXABAN
     Indication: Cerebrovascular accident prophylaxis
  2. ELIQUIS [Suspect]
     Active Substance: APIXABAN
     Indication: Embolism venous

REACTIONS (1)
  - No adverse event [Unknown]
